FAERS Safety Report 6575978-0 (Version None)
Quarter: 2010Q1

REPORT INFORMATION
  Report Type: 
  Country: None (occurrence: None)
  Receive Date: 20100209
  Receipt Date: 20100129
  Transmission Date: 20100710
  Serious: Yes (Other)
  Sender: FDA-Public Use
  Company Number: BE-SANOFI-AVENTIS-2010SA005785

PATIENT
  Sex: Male

DRUGS (5)
  1. INSULIN GLARGINE [Suspect]
     Indication: TYPE 2 DIABETES MELLITUS
     Route: 058
     Dates: start: 20100112, end: 20100114
  2. GLUCOPHAGE [Concomitant]
  3. BISOPROLOL [Concomitant]
  4. PRAVASTATIN [Concomitant]
  5. ASAFLOW [Concomitant]

REACTIONS (1)
  - TOXIC SKIN ERUPTION [None]
